FAERS Safety Report 12773627 (Version 3)
Quarter: 2016Q3

REPORT INFORMATION
  Report Type: Spontaneous
  Country: US (occurrence: US)
  Receive Date: 20160923
  Receipt Date: 20160926
  Transmission Date: 20161109
  Serious: Yes (Other)
  Sender: FDA-Public Use
  Company Number: US-BRISTOL-MYERS SQUIBB COMPANY-BMS-2016-077103

PATIENT

DRUGS (4)
  1. QUETIAPINE. [Suspect]
     Active Substance: QUETIAPINE
     Indication: SLEEP DISORDER
     Dosage: 300 MG, UNK
     Route: 065
  2. QUETIAPINE. [Suspect]
     Active Substance: QUETIAPINE
     Indication: AFFECTIVE DISORDER
  3. ABILIFY [Suspect]
     Active Substance: ARIPIPRAZOLE
     Dosage: 25 MG, UNK
     Route: 065
  4. ABILIFY [Suspect]
     Active Substance: ARIPIPRAZOLE
     Indication: PRODUCT USED FOR UNKNOWN INDICATION
     Dosage: 15 MG, UNK
     Route: 065

REACTIONS (4)
  - Hallucination, auditory [Unknown]
  - Psychotic disorder [Unknown]
  - Paranoia [Unknown]
  - Delusion [Unknown]
